FAERS Safety Report 8328185-5 (Version None)
Quarter: 2012Q2

REPORT INFORMATION
  Report Type: 
  Country: None (occurrence: None)
  Receive Date: 20120502
  Receipt Date: 20120426
  Transmission Date: 20120825
  Serious: Yes (Hospitalization, Other)
  Sender: FDA-Public Use
  Company Number: JP-PFIZER INC-2012104095

PATIENT
  Age: 77 Year
  Sex: Male

DRUGS (2)
  1. LYRICA [Suspect]
     Indication: SPONDYLITIS
     Dosage: 150 MG/DAY
     Route: 048
     Dates: start: 20120417, end: 20120418
  2. VOLTAREN [Concomitant]
     Dosage: 25 MG/DAY

REACTIONS (3)
  - DYSARTHRIA [None]
  - BRAIN NEOPLASM [None]
  - CEREBRAL HAEMORRHAGE [None]
